FAERS Safety Report 4795540-X (Version None)
Quarter: 2005Q4

REPORT INFORMATION
  Report Type: 
  Country: None (occurrence: None)
  Receive Date: 20051007
  Receipt Date: 20051007
  Transmission Date: 20060501
  Serious: Yes (Life-Threatening, Hospitalization)
  Sender: FDA-Public Use
  Company Number: None

PATIENT
  Age: 78 Year
  Sex: Female
  Weight: 77.5651 kg

DRUGS (7)
  1. CARBOPLATIN [Suspect]
     Indication: ENDOMETRIAL CANCER
     Dosage: AUC 5 = 336 MG   EVERY 21 DAYS  IV BOLUS   CYCLE #8
     Route: 040
     Dates: start: 20040611, end: 20050603
  2. GLUCOTROL XL [Concomitant]
  3. INDAPAMIDE [Concomitant]
  4. WARFARIN [Concomitant]
  5. BISCODYL [Concomitant]
  6. DEXAMETHASONE [Concomitant]
  7. PALONOSETRON [Concomitant]

REACTIONS (1)
  - DRUG HYPERSENSITIVITY [None]
